FAERS Safety Report 8371636-0 (Version None)
Quarter: 2012Q2

REPORT INFORMATION
  Report Type: 
  Country: None (occurrence: None)
  Receive Date: 20120518
  Receipt Date: 20120509
  Transmission Date: 20120825
  Serious: Yes (Hospitalization)
  Sender: FDA-Public Use
  Company Number: US-VERTEX PHARMACEUTICALS INC.-AE-2012-006675

PATIENT
  Sex: Male

DRUGS (19)
  1. INCIVEK [Suspect]
     Indication: HEPATITIS C
     Route: 048
     Dates: start: 20120101, end: 20120418
  2. PEGASYS [Concomitant]
     Indication: HEPATITIS C
     Route: 058
     Dates: start: 20120101, end: 20120418
  3. LOPRESSOR [Concomitant]
     Route: 048
  4. LISINOPRIL [Concomitant]
     Route: 048
  5. SYNTHROID [Concomitant]
     Route: 048
  6. PROMETHAZINE [Concomitant]
  7. CARTIA XT [Concomitant]
     Route: 048
  8. MULTI-VITAMINS [Concomitant]
  9. TESTOSTERONE [Concomitant]
     Route: 061
  10. COLACE [Concomitant]
     Route: 048
  11. TYLENOL [Concomitant]
     Route: 048
  12. NUVIGIL [Concomitant]
  13. PRILOSEC [Concomitant]
     Route: 048
  14. RIBASPHERE [Concomitant]
     Indication: HEPATITIS C
     Route: 048
     Dates: start: 20120101, end: 20120418
  15. ZYRTEC [Concomitant]
     Route: 048
  16. MORPHINE SULFATE [Concomitant]
     Route: 048
  17. VIMPAT [Concomitant]
     Route: 048
  18. VALIUM [Concomitant]
     Route: 048
  19. IMITREX [Concomitant]

REACTIONS (1)
  - CYSTITIS [None]
